FAERS Safety Report 16087462 (Version 2)
Quarter: 2022Q2

REPORT INFORMATION
  Report Type: Other
  Country: GB (occurrence: GB)
  Receive Date: 20190319
  Receipt Date: 20220420
  Transmission Date: 20220721
  Serious: Yes (Other)
  Sender: FDA-Public Use
  Company Number: GB-PFIZER INC-2019096399

PATIENT
  Age: 60 Year
  Sex: Male

DRUGS (5)
  1. RITUXIMAB [Suspect]
     Active Substance: RITUXIMAB
     Indication: Diffuse large B-cell lymphoma
     Dosage: CYCLIC (8 CYCLES)
     Route: 065
     Dates: start: 2008
  2. VINCRISTINE SULFATE [Suspect]
     Active Substance: VINCRISTINE SULFATE
     Indication: Diffuse large B-cell lymphoma
     Dosage: CYCLIC (8 CYCLES)
     Route: 065
     Dates: start: 2008
  3. DOXORUBICIN [Suspect]
     Active Substance: DOXORUBICIN
     Indication: Diffuse large B-cell lymphoma
     Dosage: CYCLIC (8 CYCLES)
     Route: 065
     Dates: start: 2008
  4. PREDNISONE [Suspect]
     Active Substance: PREDNISONE
     Indication: Diffuse large B-cell lymphoma
     Dosage: CYCLIC (8 CYCLES)
     Route: 065
     Dates: start: 2008
  5. CYCLOPHOSPHAMIDE [Suspect]
     Active Substance: CYCLOPHOSPHAMIDE
     Indication: Diffuse large B-cell lymphoma
     Dosage: CYCLIC (8 CYCLES)
     Route: 065
     Dates: start: 2008

REACTIONS (2)
  - Peripheral T-cell lymphoma unspecified [Recovered/Resolved]
  - Second primary malignancy [Recovered/Resolved]
